FAERS Safety Report 8979725 (Version 1)
Quarter: 2012Q4

REPORT INFORMATION
  Report Type: 
  Country: US (occurrence: US)
  Receive Date: 20121221
  Receipt Date: 20121221
  Transmission Date: 20130627
  Serious: Yes (Death)
  Sender: FDA-Public Use
  Company Number: PHEH2012US025050

PATIENT
  Age: 77 Year
  Sex: Male

DRUGS (1)
  1. TOBI [Suspect]
     Indication: BRONCHIECTASIS
     Dosage: 300 mg, BID
     Dates: start: 20121102

REACTIONS (1)
  - Death [Fatal]
